FAERS Safety Report 7767392-7 (Version None)
Quarter: 2011Q3

REPORT INFORMATION
  Report Type: 
  Country: None (occurrence: None)
  Receive Date: 20110922
  Receipt Date: 20100517
  Transmission Date: 20111222
  Serious: No
  Sender: FDA-Public Use
  Company Number: US-ASTRAZENECA-2009SE16025

PATIENT
  Age: 610 Month
  Sex: Female
  Weight: 94.3 kg

DRUGS (9)
  1. LYRICA [Concomitant]
     Indication: PAIN
     Dates: start: 20060101
  2. LYRICA [Concomitant]
     Indication: ANXIETY
     Dates: start: 20060101
  3. METHADONE HCL [Concomitant]
     Indication: PAIN
     Dosage: 80-160 MG DAILY
     Dates: start: 20060112
  4. CLARITIN [Concomitant]
     Dates: start: 20080521
  5. CYMBALTA [Concomitant]
     Dates: start: 20060101
  6. SEROQUEL [Suspect]
     Dosage: 200-400 MG DAILY
     Route: 048
     Dates: start: 20060201
  7. NIASPAN [Concomitant]
     Dosage: 500-100 MG DAILY
     Dates: start: 20080521
  8. HYDROCHLOROTHIAZIDE [Concomitant]
     Dates: start: 20070919
  9. QUINAPRIL HCL [Concomitant]
     Dates: start: 20070919

REACTIONS (5)
  - DIABETES MELLITUS INADEQUATE CONTROL [None]
  - HYPOGLYCAEMIA [None]
  - DIABETES MELLITUS [None]
  - INSULIN RESISTANCE [None]
  - METABOLIC SYNDROME [None]
